FAERS Safety Report 12879516 (Version 4)
Quarter: 2016Q4

REPORT INFORMATION
  Report Type: Report from Study
  Country: CH (occurrence: CH)
  Receive Date: 20161025
  Receipt Date: 20161125
  Transmission Date: 20170207
  Serious: Yes (Hospitalization)
  Sender: FDA-Public Use
  Company Number: CH-ROCHE-1844377

PATIENT
  Age: 53 Year

DRUGS (8)
  1. DAFALGAN [Concomitant]
     Active Substance: ACETAMINOPHEN
     Route: 048
     Dates: start: 20131126, end: 20161019
  2. PERTUZUMAB [Suspect]
     Active Substance: PERTUZUMAB
     Dosage: MAINTAINANCE DOSE: 420 MG?DATE OF LAST ADMINISTERED DOSE PRIOR TO SAE: 28/SEP/2016
     Route: 042
     Dates: start: 20131217, end: 20161019
  3. PERTUZUMAB [Suspect]
     Active Substance: PERTUZUMAB
     Indication: HER-2 POSITIVE BREAST CANCER
     Dosage: LOADING DOSE
     Route: 042
     Dates: start: 20131126, end: 20131126
  4. TRASTUZUMAB [Suspect]
     Active Substance: TRASTUZUMAB
     Indication: HER-2 POSITIVE BREAST CANCER
     Dosage: LOADING DOSE
     Route: 042
     Dates: start: 20131126, end: 20131126
  5. LYRICA [Concomitant]
     Active Substance: PREGABALIN
     Route: 048
     Dates: start: 20161005, end: 20161019
  6. TRASTUZUMAB [Suspect]
     Active Substance: TRASTUZUMAB
     Dosage: MAINTAINANCE DOSE 6 MG/KG AS PER PROTOCOL?DATE OF LAST ADMINISTRATION BEFORE SAE: 28/SEP/2016
     Route: 042
     Dates: start: 20131217, end: 20161019
  7. CIMIFEMIN [Concomitant]
     Route: 048
     Dates: start: 20160928, end: 20161020
  8. LYRICA [Concomitant]
     Active Substance: PREGABALIN
     Dosage: REINTRODUCED
     Route: 065
     Dates: start: 2016

REACTIONS (2)
  - Alanine aminotransferase increased [Recovered/Resolved]
  - Aspartate aminotransferase increased [Recovered/Resolved]

NARRATIVE: CASE EVENT DATE: 20161019
